FAERS Safety Report 5003825-7 (Version None)
Quarter: 2006Q2

REPORT INFORMATION
  Report Type: 
  Country: None (occurrence: None)
  Receive Date: 20060515
  Receipt Date: 20060502
  Transmission Date: 20061013
  Serious: Yes (Life-Threatening)
  Sender: FDA-Public Use
  Company Number: 2006022084

PATIENT
  Age: 57 Year
  Sex: Female
  Weight: 53 kg

DRUGS (5)
  1. SUTENT [Suspect]
     Indication: RENAL CELL CARCINOMA STAGE UNSPECIFIED
     Dosage: 37.5 MG (37.5 MG, 1 IN 1 D), ORAL
     Route: 048
     Dates: start: 20060111, end: 20060204
  2. DURAGESIC-100 [Concomitant]
  3. BENALAPRIL                 (ENALAPRIL) [Concomitant]
  4. AMLOPIN                                   (AMLODIPINE BESILATE) [Concomitant]
  5. AREDIA [Concomitant]

REACTIONS (1)
  - TONGUE OEDEMA [None]
